FAERS Safety Report 15284759 (Version 2)
Quarter: 2019Q1

REPORT INFORMATION
  Report Type: Report from Study
  Country: JP (occurrence: JP)
  Receive Date: 20180816
  Receipt Date: 20190214
  Transmission Date: 20190417
  Serious: Yes (Death, Hospitalization, Other)
  Sender: FDA-Public Use
  Company Number: JP-INCYTE CORPORATION-2018IN006511

PATIENT

DRUGS (16)
  1. JAKAVI [Suspect]
     Active Substance: RUXOLITINIB
     Dosage: 5 MG, QOD
     Route: 048
     Dates: start: 20141217, end: 20150209
  2. JAKAVI [Suspect]
     Active Substance: RUXOLITINIB
     Dosage: 5 MG, BID
     Route: 048
     Dates: start: 20150519, end: 20150929
  3. MIYA-BM [Concomitant]
     Active Substance: CLOSTRIDIUM BUTYRICUM SPORES STRAIN M-55
     Indication: PRIMARY MYELOFIBROSIS
     Dosage: 60 MG, QD
     Route: 048
     Dates: start: 20141029
  4. JAKAVI [Suspect]
     Active Substance: RUXOLITINIB
     Dosage: 5 MG, QD
     Route: 048
     Dates: start: 20141024, end: 20141125
  5. JAKAVI [Suspect]
     Active Substance: RUXOLITINIB
     Dosage: 15 MG, QD (10MG IN MORNING, 5MG IN AFTERNOON)
     Route: 048
     Dates: start: 20150930, end: 20151203
  6. PREDNISOLONE. [Concomitant]
     Active Substance: PREDNISOLONE
     Indication: PRIMARY MYELOFIBROSIS
     Dosage: 5 MG, QD
     Route: 048
     Dates: start: 20150121
  7. JAKAVI [Suspect]
     Active Substance: RUXOLITINIB
     Dosage: 5 MG, QD
     Route: 048
     Dates: start: 20150210, end: 20150518
  8. JAKAVI [Suspect]
     Active Substance: RUXOLITINIB
     Dosage: 5 MG, BID
     Route: 048
     Dates: start: 20151204, end: 20160412
  9. GASLON [Concomitant]
     Active Substance: IRSOGLADINE MALEATE
     Indication: PRIMARY MYELOFIBROSIS
     Dosage: 4 MG, UNK
     Route: 048
     Dates: start: 20141014
  10. TENELIA [Concomitant]
     Active Substance: TENELIGLIPTIN
     Indication: PRIMARY MYELOFIBROSIS
     Dosage: 20 MG, QD
     Route: 048
     Dates: start: 20150210
  11. JAKAVI [Suspect]
     Active Substance: RUXOLITINIB
     Dosage: 15 MG, QD (10MG IN MORNING, 5MG IN AFTERNOON)
     Route: 048
     Dates: start: 20160615, end: 20160920
  12. FEBURIC [Concomitant]
     Active Substance: FEBUXOSTAT
     Indication: PRIMARY MYELOFIBROSIS
     Dosage: 20 MG, UNK
     Route: 048
  13. EXJADE [Concomitant]
     Active Substance: DEFERASIROX
     Indication: PRIMARY MYELOFIBROSIS
     Dosage: 250 MG, UNK
     Route: 048
     Dates: start: 20141029
  14. AMARYL [Concomitant]
     Active Substance: GLIMEPIRIDE
     Indication: PRIMARY MYELOFIBROSIS
     Dosage: 1 MG, QD
     Route: 048
     Dates: start: 20150210
  15. JAKAVI [Suspect]
     Active Substance: RUXOLITINIB
     Dosage: 5 MG, BID
     Route: 048
     Dates: start: 20160525, end: 20160614
  16. JAKAVI [Suspect]
     Active Substance: RUXOLITINIB
     Indication: PRIMARY MYELOFIBROSIS
     Dosage: 5 MG, QOD
     Route: 048
     Dates: start: 20141016

REACTIONS (9)
  - Primary myelofibrosis [Unknown]
  - Multiple organ dysfunction syndrome [Fatal]
  - Abdominal pain [Unknown]
  - Retroperitoneal haemorrhage [Unknown]
  - Gamma-glutamyltransferase increased [Recovering/Resolving]
  - Leucine aminopeptidase increased [Recovering/Resolving]
  - Anaemia [Unknown]
  - Infection [Unknown]
  - Sepsis [Recovered/Resolved]

NARRATIVE: CASE EVENT DATE: 20141126
